FAERS Safety Report 23267562 (Version 1)
Quarter: 2023Q4

REPORT INFORMATION
  Report Type: Spontaneous
  Country: US (occurrence: None)
  Receive Date: 20231205
  Receipt Date: 20231205
  Transmission Date: 20240110
  Serious: No
  Sender: FDA-Public Use
  Company Number: None

PATIENT
  Age: 38 Year
  Sex: Female
  Weight: 75.6 kg

DRUGS (1)
  1. ESCITALOPRAM [Suspect]
     Active Substance: ESCITALOPRAM OXALATE
     Indication: Major depression
     Dosage: OTHER QUANTITY : 0.5 TABLET(S);?FREQUENCY : AT BEDTIME;?
     Route: 048
     Dates: start: 20231111, end: 20231112

REACTIONS (4)
  - Serotonin syndrome [None]
  - Visual field defect [None]
  - Aura [None]
  - Back pain [None]

NARRATIVE: CASE EVENT DATE: 20231111
